FAERS Safety Report 18404886 (Version 1)
Quarter: 2020Q4

REPORT INFORMATION
  Report Type: Spontaneous
  Country: US (occurrence: US)
  Receive Date: 20201020
  Receipt Date: 20201020
  Transmission Date: 20210114
  Serious: Yes (Hospitalization)
  Sender: FDA-Public Use
  Company Number: None

PATIENT
  Age: 87 Year
  Sex: Male
  Weight: 75 kg

DRUGS (1)
  1. APIXABAN [Suspect]
     Active Substance: APIXABAN
     Indication: ATRIAL FIBRILLATION
     Route: 048
     Dates: start: 20200727, end: 20200731

REACTIONS (4)
  - Altered state of consciousness [None]
  - Haemoglobin decreased [None]
  - Gastrointestinal haemorrhage [None]
  - Blood pressure decreased [None]

NARRATIVE: CASE EVENT DATE: 20200731
